FAERS Safety Report 16812395 (Version 2)
Quarter: 2020Q3

REPORT INFORMATION
  Report Type: Spontaneous
  Country: PT (occurrence: PT)
  Receive Date: 20190916
  Receipt Date: 20200723
  Transmission Date: 20201102
  Serious: Yes (Other)
  Sender: FDA-Public Use
  Company Number: PT-MYLANLABS-2019M1086699

PATIENT
  Age: 38 Year
  Sex: Female

DRUGS (24)
  1. TRASTUZUMAB. [Suspect]
     Active Substance: TRASTUZUMAB
     Indication: BREAST CANCER STAGE III
     Dosage: 1 DOSAGE FORM, Q3W
     Route: 065
  2. DENOSUMAB [Suspect]
     Active Substance: DENOSUMAB
     Indication: BREAST CANCER STAGE III
     Dosage: UNK UNK, Q4W
     Route: 065
     Dates: start: 20180301
  3. DOCETAXEL. [Suspect]
     Active Substance: DOCETAXEL
     Indication: BREAST CANCER STAGE III
     Dosage: 1 DOSAGE FORM, Q3W (4 CYCLES)
     Route: 065
  4. GOSERELIN [Suspect]
     Active Substance: GOSERELIN
     Indication: BREAST CANCER STAGE III
     Dosage: UNK
     Route: 065
     Dates: start: 201805, end: 201806
  5. GOSERELIN [Suspect]
     Active Substance: GOSERELIN
     Dosage: UNK
     Route: 065
     Dates: start: 201807, end: 201903
  6. CISPLATIN. [Suspect]
     Active Substance: CISPLATIN
     Indication: BREAST CANCER STAGE III
     Dosage: UNK
     Route: 065
     Dates: start: 201804, end: 201804
  7. DENOSUMAB [Suspect]
     Active Substance: DENOSUMAB
     Dosage: UNK
     Route: 065
     Dates: start: 201805, end: 201806
  8. LAPATINIB [Suspect]
     Active Substance: LAPATINIB
     Dosage: UNK
     Route: 065
     Dates: start: 201807, end: 201903
  9. TRASTUZUMAB. [Suspect]
     Active Substance: TRASTUZUMAB
     Dosage: UNK
     Route: 065
     Dates: start: 201804, end: 201804
  10. LETROZOLE. [Suspect]
     Active Substance: LETROZOLE
     Indication: BREAST CANCER STAGE III
     Dosage: UNK
     Route: 065
     Dates: start: 201805, end: 201806
  11. CYCLOPHOSPHAMIDE. [Suspect]
     Active Substance: CYCLOPHOSPHAMIDE
     Indication: BREAST CANCER STAGE III
     Dosage: UNK, Q3W, 4 CYCLES
     Route: 065
  12. LAPATINIB [Suspect]
     Active Substance: LAPATINIB
     Indication: BREAST CANCER STAGE III
     Dosage: UNK
     Route: 065
     Dates: start: 201702, end: 201709
  13. TRASTUZUMAB. [Suspect]
     Active Substance: TRASTUZUMAB
     Dosage: UNK
     Route: 065
     Dates: start: 201710, end: 201803
  14. EVEROLIMUS. [Suspect]
     Active Substance: EVEROLIMUS
     Indication: BREAST CANCER STAGE III
     Dosage: UNK
     Route: 065
     Dates: start: 201807, end: 201903
  15. GOSERELIN [Suspect]
     Active Substance: GOSERELIN
     Dosage: UNK
     Route: 065
     Dates: start: 201710, end: 201803
  16. EXEMESTANE. [Suspect]
     Active Substance: EXEMESTANE
     Indication: BREAST CANCER STAGE III
     Dosage: UNK
     Route: 065
     Dates: start: 201807, end: 201903
  17. LAPATINIB [Suspect]
     Active Substance: LAPATINIB
     Dosage: UNK
     Route: 065
     Dates: start: 201710, end: 201803
  18. CAPECITABINE. [Suspect]
     Active Substance: CAPECITABINE
     Dosage: UNK
     Route: 065
     Dates: start: 201710, end: 201903
  19. CAPECITABINE. [Suspect]
     Active Substance: CAPECITABINE
     Dosage: UNK
     Route: 065
     Dates: start: 201702, end: 201709
  20. DOXORUBICIN [Suspect]
     Active Substance: DOXORUBICIN
     Indication: BREAST CANCER STAGE III
     Dosage: 1 DOSAGE FORM, Q3W, 4 CYCLES
     Route: 065
  21. LAPATINIB [Suspect]
     Active Substance: LAPATINIB
     Dosage: UNK
     Route: 065
     Dates: start: 201805, end: 201806
  22. TRASTUZUMAB. [Suspect]
     Active Substance: TRASTUZUMAB
     Dosage: UNK
     Route: 065
     Dates: start: 201805, end: 201806
  23. DENOSUMAB [Suspect]
     Active Substance: DENOSUMAB
     Dosage: UNK
     Route: 065
     Dates: start: 201804, end: 201804
  24. CAPECITABINE. [Suspect]
     Active Substance: CAPECITABINE
     Indication: BREAST CANCER STAGE III
     Dosage: UNK
     Route: 065
     Dates: start: 201609, end: 201701

REACTIONS (8)
  - Therapeutic response decreased [Unknown]
  - Inappropriate schedule of product administration [Unknown]
  - Metastases to lymph nodes [Unknown]
  - Skin lesion [Unknown]
  - Malignant neoplasm progression [Unknown]
  - Breast cancer stage III [Unknown]
  - Metastases to skin [Unknown]
  - Dermatitis [Unknown]

NARRATIVE: CASE EVENT DATE: 201309
